FAERS Safety Report 10069996 (Version 1)
Quarter: 2014Q2

REPORT INFORMATION
  Report Type: Spontaneous
  Country: AR (occurrence: None)
  Receive Date: 20140408
  Receipt Date: 20140408
  Transmission Date: 20141212
  Serious: Yes (Hospitalization)
  Sender: FDA-Public Use
  Company Number: 2014HINLIT0310

PATIENT
  Age: 32 Year
  Sex: Female

DRUGS (5)
  1. LAMIVUDINE (LAMIVUDINE) UNKNOWN [Suspect]
     Indication: HIV INFECTION
  2. ZIDOVUDINE (ZIDOVUDINE) UNKNOWN) [Suspect]
     Indication: HIV INFECTION
  3. LOPINAVIR + RITONAVIR (LOPINAVIR, RITONAVIR) UNKNOWN [Suspect]
     Indication: HIV INFECTION
  4. MIGRAL (ERGOTAMINE, DIPYRONE, CAFFEINE) TABLET [Suspect]
     Indication: PRODUCT USED FOR UNKNOWN INDICATION
     Dosage: 1MG/500MG/100MG, UNKNOWN
  5. MIGRAL (ERGOTAMINE, DIPYRONE, CAFFEINE) TABLET [Suspect]
     Indication: SELF-MEDICATION
     Dosage: 1MG/500MG/100MG, UNKNOWN

REACTIONS (6)
  - Ergot poisoning [None]
  - Drug interaction [None]
  - Self-medication [None]
  - Hypotension [None]
  - Cyanosis [None]
  - Pulse absent [None]
